FAERS Safety Report 5730392-2 (Version None)
Quarter: 2008Q2

REPORT INFORMATION
  Report Type: 
  Country: None (occurrence: None)
  Receive Date: 20080505
  Receipt Date: 20080505
  Transmission Date: 20081010
  Serious: Yes (Hospitalization)
  Sender: FDA-Public Use
  Company Number: None

PATIENT
  Sex: Female
  Weight: 81.6475 kg

DRUGS (2)
  1. ZOSYN [Suspect]
     Indication: PYELONEPHRITIS
     Dosage: 4.5 G Q8H IV
     Route: 042
     Dates: start: 20080320, end: 20080404
  2. ZOSYN [Suspect]
     Indication: SEPSIS
     Dosage: 4.5 G Q8H IV
     Route: 042
     Dates: start: 20080320, end: 20080404

REACTIONS (8)
  - ABDOMINAL DISCOMFORT [None]
  - ABDOMINAL DISTENSION [None]
  - ABDOMINAL PAIN UPPER [None]
  - BLOOD PRESSURE FLUCTUATION [None]
  - HAEMOGLOBIN DECREASED [None]
  - NAUSEA [None]
  - ORAL INTAKE REDUCED [None]
  - PHARMACEUTICAL PRODUCT COMPLAINT [None]
